FAERS Safety Report 15605786 (Version 2)
Quarter: 2019Q1

REPORT INFORMATION
  Report Type: Spontaneous
  Country: US (occurrence: US)
  Receive Date: 20181112
  Receipt Date: 20190322
  Transmission Date: 20190417
  Serious: Yes (Other)
  Sender: FDA-Public Use
  Company Number: US-HORIZON-VIM-0890-2018

PATIENT

DRUGS (17)
  1. ACIPHEX [Suspect]
     Active Substance: RABEPRAZOLE SODIUM
     Dosage: UNK
     Route: 065
     Dates: start: 2006, end: 2016
  2. PRILOSEC OTC [Suspect]
     Active Substance: OMEPRAZOLE MAGNESIUM
     Dosage: UNK
     Route: 048
     Dates: start: 2006, end: 2016
  3. DEXILANT [Suspect]
     Active Substance: DEXLANSOPRAZOLE
     Dosage: UNK
     Route: 065
     Dates: start: 2006, end: 2016
  4. ATENOLOL. [Concomitant]
     Active Substance: ATENOLOL
  5. GABAPENTIN. [Concomitant]
     Active Substance: GABAPENTIN
  6. NEXIUM [Suspect]
     Active Substance: ESOMEPRAZOLE MAGNESIUM
     Dosage: UNK
     Route: 048
     Dates: start: 2006, end: 2016
  7. PREVACID [Suspect]
     Active Substance: LANSOPRAZOLE
     Dosage: UNK
     Route: 065
     Dates: start: 2006, end: 2016
  8. TRAMADOL. [Concomitant]
     Active Substance: TRAMADOL
  9. VIMOVO [Suspect]
     Active Substance: ESOMEPRAZOLE MAGNESIUM\NAPROXEN
     Indication: PRODUCT USED FOR UNKNOWN INDICATION
     Dosage: UNK
     Route: 048
     Dates: start: 2006, end: 2016
  10. PRILOSEC [Suspect]
     Active Substance: OMEPRAZOLE MAGNESIUM
     Dosage: UNK
     Route: 048
     Dates: start: 2006, end: 2016
  11. FLUOXETINE [Concomitant]
     Active Substance: FLUOXETINE HYDROCHLORIDE
  12. PROTONIX [Suspect]
     Active Substance: PANTOPRAZOLE SODIUM
     Dosage: UNK
     Route: 065
     Dates: start: 2006, end: 2016
  13. DIOVAN [Concomitant]
     Active Substance: VALSARTAN
  14. METFORMIN [Concomitant]
     Active Substance: METFORMIN HYDROCHLORIDE
  15. NEXIUM 24HR [Suspect]
     Active Substance: ESOMEPRAZOLE MAGNESIUM
     Dosage: UNK
     Route: 048
     Dates: start: 2006, end: 2016
  16. IBUPROFEN. [Concomitant]
     Active Substance: IBUPROFEN
  17. CLONIDINE. [Concomitant]
     Active Substance: CLONIDINE

REACTIONS (3)
  - Acute kidney injury [Unknown]
  - Renal failure [Unknown]
  - Chronic kidney disease [Unknown]
